FAERS Safety Report 6831570-1 (Version None)
Quarter: 2010Q3

REPORT INFORMATION
  Report Type: 
  Country: None (occurrence: None)
  Receive Date: 20100712
  Receipt Date: 20100629
  Transmission Date: 20110219
  Serious: Yes (Disabling)
  Sender: FDA-Public Use
  Company Number: PHHY2010US22450

PATIENT
  Sex: Female
  Weight: 48.1 kg

DRUGS (2)
  1. RECLAST [Suspect]
     Indication: OSTEOPOROSIS
     Dosage: 5 MG/ 100ML
     Route: 042
     Dates: start: 20100405, end: 20100405
  2. ANTIINFLAMMATORY/ANTIRHEUMATIC PRODUCTS [Concomitant]
     Dosage: UNK,UNK

REACTIONS (5)
  - ERYTHEMA [None]
  - MYALGIA [None]
  - PRURITUS [None]
  - RASH [None]
  - TENDONITIS [None]
